FAERS Safety Report 9286064 (Version 2)
Quarter: 2013Q2

REPORT INFORMATION
  Report Type: Report from Study
  Country: GB (occurrence: GB)
  Receive Date: 20130513
  Receipt Date: 20130620
  Transmission Date: 20140414
  Serious: Yes (Other)
  Sender: FDA-Public Use
  Company Number: GB-BAYER-2013-051017

PATIENT
  Age: 43 Year
  Sex: Male

DRUGS (3)
  1. BETAFERON [Suspect]
     Indication: MULTIPLE SCLEROSIS
     Dosage: 250 ?G, QOD
     Route: 058
     Dates: start: 20130419
  2. BETAFERON [Suspect]
     Indication: MULTIPLE SCLEROSIS
     Dosage: REDUCED DOSE
     Route: 058
     Dates: start: 20130429
  3. PARACETAMOL [Concomitant]
     Indication: PREMEDICATION

REACTIONS (8)
  - Muscle spasms [Recovered/Resolved]
  - Fall [Recovered/Resolved]
  - Pyrexia [None]
  - Influenza like illness [None]
  - Pyrexia [None]
  - Tremor [None]
  - Head titubation [None]
  - Multiple sclerosis relapse [None]
